FAERS Safety Report 9630854 (Version 1)
Quarter: 2013Q4

REPORT INFORMATION
  Report Type: Spontaneous
  Country: FR (occurrence: FR)
  Receive Date: 20131018
  Receipt Date: 20131018
  Transmission Date: 20140711
  Serious: Yes (Other)
  Sender: FDA-Public Use
  Company Number: FR-JNJFOC-20131009084

PATIENT
  Age: 77 Year
  Sex: Male
  Weight: 74 kg

DRUGS (5)
  1. XARELTO [Suspect]
     Indication: PRODUCT USED FOR UNKNOWN INDICATION
     Route: 048
  2. TAHOR [Concomitant]
     Route: 065
  3. KARDEGIC [Concomitant]
     Route: 065
  4. ISOPTINE [Concomitant]
     Route: 065
  5. COVERSYL [Concomitant]
     Route: 065

REACTIONS (1)
  - Pulmonary embolism [Unknown]
